FAERS Safety Report 9940825 (Version 1)
Quarter: 2014Q1

REPORT INFORMATION
  Report Type: Spontaneous
  Country: FR (occurrence: FR)
  Receive Date: 20140303
  Receipt Date: 20140303
  Transmission Date: 20141002
  Serious: Yes (Hospitalization)
  Sender: FDA-Public Use
  Company Number: FR-TEVA-464405ISR

PATIENT
  Age: 59 Year
  Sex: Male

DRUGS (2)
  1. METHOTREXATE TEVA [Suspect]
     Indication: B-CELL LYMPHOMA
     Route: 042
     Dates: start: 20131127, end: 20131127
  2. ONDANSETRON ACCORD [Suspect]
     Indication: B-CELL LYMPHOMA
     Route: 042
     Dates: start: 20131127, end: 20131128

REACTIONS (6)
  - Hepatocellular injury [Recovered/Resolved]
  - Cholestasis [Recovered/Resolved]
  - Renal failure acute [Recovered/Resolved]
  - Hypotension [Recovered/Resolved]
  - Pyrexia [Recovered/Resolved]
  - Rash [Recovered/Resolved]
